FAERS Safety Report 6905896-7 (Version None)
Quarter: 2010Q3

REPORT INFORMATION
  Report Type: 
  Country: None (occurrence: None)
  Receive Date: 20100804
  Receipt Date: 20100727
  Transmission Date: 20110219
  Serious: Yes (Hospitalization)
  Sender: FDA-Public Use
  Company Number: FR-ROCHE-717635

PATIENT
  Sex: Female
  Weight: 60 kg

DRUGS (4)
  1. PEGINTERFERON ALFA-2A [Suspect]
     Dosage: FORM: PER PROTOCOL.
     Route: 058
     Dates: start: 20090609
  2. RIBAVIRIN [Suspect]
     Dosage: FORM: PER PROTOCOL.
     Route: 048
     Dates: start: 20090609
  3. BI 201335 NA [Suspect]
     Route: 048
     Dates: start: 20090609
  4. BISOPROLOL [Concomitant]
     Route: 048
     Dates: start: 20000125

REACTIONS (1)
  - LICHEN PLANUS [None]
